FAERS Safety Report 4995705-8 (Version None)
Quarter: 2006Q1

REPORT INFORMATION
  Report Type: 
  Country: None (occurrence: None)
  Receive Date: 20060315
  Receipt Date: 20060109
  Transmission Date: 20060701
  Serious: Yes (Other)
  Sender: FDA-Public Use
  Company Number: 431510

PATIENT
  Age: 83 Year
  Sex: Female

DRUGS (3)
  1. BONIVA [Suspect]
     Indication: OSTEOPOROSIS
     Dosage: 150 MG 1 PER MONTH ORAL
     Route: 048
     Dates: start: 20051227
  2. CITRACAL (CALCIUM CITRATE) [Concomitant]
  3. INSULIN [Concomitant]

REACTIONS (2)
  - DIARRHOEA [None]
  - IRRITABLE BOWEL SYNDROME [None]
